FAERS Safety Report 7550027-6 (Version None)
Quarter: 2011Q2

REPORT INFORMATION
  Report Type: 
  Country: None (occurrence: None)
  Receive Date: 20110615
  Receipt Date: 20110602
  Transmission Date: 20111010
  Serious: Yes (Hospitalization)
  Sender: FDA-Public Use
  Company Number: GB-ACTELION-A-CH2011-48142

PATIENT
  Sex: Female

DRUGS (2)
  1. WARFARIN SODIUM [Suspect]
     Dosage: UNK
     Dates: end: 20110405
  2. TRACLEER [Suspect]
     Indication: PULMONARY ARTERIAL HYPERTENSION
     Dosage: 62.5 MG, BID
     Route: 048

REACTIONS (9)
  - CEREBROVASCULAR ACCIDENT [None]
  - PROTHROMBIN TIME PROLONGED [None]
  - LIVER FUNCTION TEST ABNORMAL [None]
  - INTERNATIONAL NORMALISED RATIO DECREASED [None]
  - BLOOD BILIRUBIN ABNORMAL [None]
  - GASTROINTESTINAL TUBE INSERTION [None]
  - ASPARTATE AMINOTRANSFERASE INCREASED [None]
  - ALANINE AMINOTRANSFERASE INCREASED [None]
  - CELLULITIS [None]
